FAERS Safety Report 7292775-1 (Version None)
Quarter: 2011Q1

REPORT INFORMATION
  Report Type: 
  Country: None (occurrence: None)
  Receive Date: 20110215
  Receipt Date: 20110207
  Transmission Date: 20110831
  Serious: Yes (Hospitalization)
  Sender: FDA-Public Use
  Company Number: JP-NAPPMUNDI-MAG-2010-0001375

PATIENT
  Sex: Male

DRUGS (4)
  1. OXYCODONE HCL [Suspect]
     Indication: CANCER PAIN
     Dosage: 10 MG, PRN
     Route: 048
     Dates: start: 20100107, end: 20100207
  2. OXYCODONE HCL [Suspect]
     Indication: CANCER PAIN
     Dosage: 40 MG, DAILY
     Route: 048
     Dates: start: 20100107, end: 20100207
  3. MAGMITT [Concomitant]
     Dosage: 1980 MG, DAILY
     Route: 048
     Dates: end: 20100207
  4. TRYPTANOL                          /00002202/ [Concomitant]
     Indication: HYPOAESTHESIA
     Dosage: 10 MG, DAILY
     Route: 048
     Dates: end: 20100207

REACTIONS (1)
  - DELIRIUM [None]
